FAERS Safety Report 23866982 (Version 2)
Quarter: 2024Q3

REPORT INFORMATION
  Report Type: Report from Study
  Country: CA (occurrence: CA)
  Receive Date: 20240517
  Receipt Date: 20240709
  Transmission Date: 20241017
  Serious: No
  Sender: ROCHE
  Company Number: CA-ROCHE-3564738

PATIENT
  Sex: Male

DRUGS (1)
  1. OCREVUS [Suspect]
     Active Substance: OCRELIZUMAB
     Indication: Relapsing-remitting multiple sclerosis
     Dosage: 300 MG AT DAY 0 AND 14, THEN 600 MG EVERY 6 MONTHS
     Route: 042
     Dates: start: 20240326

REACTIONS (5)
  - Wallerian degeneration [Unknown]
  - Multiple sclerosis [Unknown]
  - Magnetic resonance imaging abnormal [Unknown]
  - Demyelination [Unknown]
  - Optic neuritis [Unknown]
